FAERS Safety Report 8118329-2 (Version None)
Quarter: 2012Q1

REPORT INFORMATION
  Report Type: 
  Country: None (occurrence: None)
  Receive Date: 20120207
  Receipt Date: 20120204
  Transmission Date: 20120608
  Serious: Yes (Other)
  Sender: FDA-Public Use
  Company Number: US-PFIZER INC-2012030915

PATIENT
  Sex: Female

DRUGS (1)
  1. IBUPROFEN (ADVIL) [Suspect]
     Indication: ARTHRALGIA
     Dosage: UNK

REACTIONS (1)
  - VAGINAL HAEMORRHAGE [None]
